FAERS Safety Report 11099772 (Version 1)
Quarter: 2015Q2

REPORT INFORMATION
  Report Type: Report from Study
  Country: US (occurrence: None)
  Receive Date: 20150507
  Receipt Date: 20150507
  Transmission Date: 20150821
  Serious: Yes (Hospitalization, Other)
  Sender: FDA-Public Use
  Company Number: US-2015CRT000432

PATIENT
  Age: 54 Year
  Sex: Female

DRUGS (19)
  1. OXYCODONE (OXYCODONE) [Concomitant]
     Active Substance: OXYCODONE
  2. KORLYM [Suspect]
     Active Substance: MIFEPRISTONE
     Indication: CUSHING^S SYNDROME
     Route: 048
     Dates: start: 20150210, end: 201503
  3. ZANTAC [Concomitant]
     Active Substance: RANITIDINE HYDROCHLORIDE
  4. AMBIEN [Concomitant]
     Active Substance: ZOLPIDEM TARTRATE
  5. PROPRANOLOL [Concomitant]
     Active Substance: PROPRANOLOL\PROPRANOLOL HYDROCHLORIDE
  6. METOLAZONE (METOLAZONE) [Concomitant]
  7. KETOCONAZOLE (KETOCONAZOLE) [Concomitant]
     Active Substance: KETOCONAZOLE
  8. KCL (POTASSIUM CHLORIDE) [Concomitant]
  9. VITAMIN D (ERGOCLCIFEROL) [Concomitant]
  10. SUCRALFATE (SUCRALFATE) [Concomitant]
  11. BUSPIRONE [Concomitant]
     Active Substance: BUSPIRONE HYDROCHLORIDE
  12. CLONAZEPAM (CLONAZEPAM) [Concomitant]
     Active Substance: CLONAZEPAM
  13. LEVOTHYROXINE (LEVOTHYROXINE) [Concomitant]
     Active Substance: LEVOTHYROXINE
  14. SPIRONOLACTONE (SPIRONOLACTONE) [Concomitant]
     Active Substance: SPIRONOLACTONE
  15. LITHIUM. [Concomitant]
     Active Substance: LITHIUM
  16. HUMULIN R (INSULIN HUMAN) [Concomitant]
  17. ALLOPURINOL (ALLOPURINOL) [Concomitant]
     Active Substance: ALLOPURINOL
  18. CYMBALTA [Concomitant]
     Active Substance: DULOXETINE HYDROCHLORIDE
  19. BUMEX (BUMETANIDE) [Concomitant]

REACTIONS (5)
  - Blood sodium decreased [None]
  - Confusional state [None]
  - General physical health deterioration [None]
  - Fall [None]
  - Hallucination [None]

NARRATIVE: CASE EVENT DATE: 20150211
